FAERS Safety Report 9219181 (Version 2)
Quarter: 2013Q2

REPORT INFORMATION
  Report Type: Spontaneous
  Country: US (occurrence: US)
  Receive Date: 20130409
  Receipt Date: 20130416
  Transmission Date: 20140414
  Serious: Yes (Other)
  Sender: FDA-Public Use
  Company Number: US-ELI_LILLY_AND_COMPANY-US201007000098

PATIENT
  Age: 83 Year
  Sex: Female

DRUGS (4)
  1. FORTEO [Suspect]
     Indication: OSTEOPOROSIS
     Dosage: 20 UG, QD
     Dates: start: 20100616
  2. FORTEO [Suspect]
     Dosage: 20 UG, QD
  3. FORTEO [Suspect]
     Dosage: 20 UG, QD
  4. COUMADIN [Concomitant]
     Dosage: UNK

REACTIONS (10)
  - Fall [Unknown]
  - Hip fracture [Unknown]
  - Heart rate increased [Not Recovered/Not Resolved]
  - Contusion [Unknown]
  - Fall [Unknown]
  - Laceration [Unknown]
  - Blood calcium increased [Unknown]
  - Asthenia [Recovering/Resolving]
  - Contusion [Unknown]
  - Muscular weakness [Unknown]
